FAERS Safety Report 10072687 (Version 1)
Quarter: 2014Q2

REPORT INFORMATION
  Report Type: Report from Study
  Country: CO (occurrence: CO)
  Receive Date: 20140411
  Receipt Date: 20140411
  Transmission Date: 20141212
  Serious: Yes (Hospitalization)
  Sender: FDA-Public Use
  Company Number: CO-SA-2014SA041249

PATIENT
  Age: 41 Year
  Sex: Male
  Weight: 104 kg

DRUGS (5)
  1. LANTUS [Suspect]
     Indication: DIABETES MELLITUS
     Dosage: DOSE:58 UNIT(S)
     Route: 058
     Dates: start: 2006
  2. LOSARTAN [Concomitant]
     Indication: HYPERTENSION
     Route: 048
  3. VERAPAMIL [Concomitant]
     Indication: HYPERTENSION
     Route: 048
  4. FUROSEMIDE [Concomitant]
     Indication: HYPERTENSION
     Route: 048
  5. ATORVASTATIN [Concomitant]
     Indication: DYSLIPIDAEMIA
     Route: 048

REACTIONS (1)
  - Soft tissue infection [Recovering/Resolving]
